FAERS Safety Report 20170948 (Version 4)
Quarter: 2023Q2

REPORT INFORMATION
  Report Type: Report from Study
  Country: CO (occurrence: CO)
  Receive Date: 20211210
  Receipt Date: 20230428
  Transmission Date: 20230722
  Serious: Yes (Hospitalization)
  Sender: FDA-Public Use
  Company Number: CO-JNJFOC-20211213853

PATIENT
  Age: 57 Year
  Sex: Male
  Weight: 48 kg

DRUGS (5)
  1. SIMPONI [Suspect]
     Active Substance: GOLIMUMAB
     Indication: Ankylosing spondylitis
     Dosage: LAST  APPLICATION ON 2/FEB/2023
     Route: 058
     Dates: start: 20160725
  2. SIMPONI [Suspect]
     Active Substance: GOLIMUMAB
     Route: 058
     Dates: start: 20200919
  3. METHOTREXATE [Concomitant]
     Active Substance: METHOTREXATE
  4. DIPYRONE [Concomitant]
     Active Substance: DIPYRONE
  5. ACETAMINOPHEN [Concomitant]
     Active Substance: ACETAMINOPHEN

REACTIONS (3)
  - Gastric ulcer haemorrhage [Not Recovered/Not Resolved]
  - Infection parasitic [Not Recovered/Not Resolved]
  - Mental disorder [Unknown]

NARRATIVE: CASE EVENT DATE: 20200101
